FAERS Safety Report 7521744-9 (Version None)
Quarter: 2011Q2

REPORT INFORMATION
  Report Type: 
  Country: None (occurrence: None)
  Receive Date: 20110603
  Receipt Date: 20110601
  Transmission Date: 20111010
  Serious: Yes (Other)
  Sender: FDA-Public Use
  Company Number: US-PFIZER INC-2011119992

PATIENT
  Sex: Female

DRUGS (1)
  1. CHANTIX [Suspect]
     Dosage: UNK
     Route: 048
     Dates: start: 20110524

REACTIONS (6)
  - IRRITABILITY [None]
  - PRURITUS [None]
  - RASH [None]
  - HEADACHE [None]
  - FRUSTRATION [None]
  - NAUSEA [None]
